FAERS Safety Report 9162672 (Version 1)
Quarter: 2013Q1

REPORT INFORMATION
  Report Type: Other
  Country: SR (occurrence: SR)
  Receive Date: 20130314
  Receipt Date: 20130314
  Transmission Date: 20140127
  Serious: Yes (Death, Hospitalization)
  Sender: FDA-Public Use
  Company Number: SR-BRISTOL-MYERS SQUIBB COMPANY-17443177

PATIENT
  Age: 3 Decade
  Sex: Female

DRUGS (3)
  1. STAVUDINE [Suspect]
     Indication: HIV INFECTION
  2. ABACAVIR [Suspect]
     Indication: HIV INFECTION
  3. LAMIVUDINE [Suspect]
     Indication: HIV INFECTION

REACTIONS (3)
  - Metabolic acidosis [Fatal]
  - Fanconi syndrome acquired [Fatal]
  - Hepatic steatosis [Fatal]
